FAERS Safety Report 25686428 (Version 1)
Quarter: 2025Q3

REPORT INFORMATION
  Report Type: Spontaneous
  Country: US (occurrence: US)
  Receive Date: 20250815
  Receipt Date: 20250815
  Transmission Date: 20251021
  Serious: Yes (Other)
  Sender: MERCK SHARP & DOHME LLC
  Company Number: US-009507513-2316494

PATIENT
  Age: 86 Year
  Sex: Male
  Weight: 68 kg

DRUGS (4)
  1. PEMBROLIZUMAB [Suspect]
     Active Substance: PEMBROLIZUMAB
     Indication: Neoplasm
     Route: 058
     Dates: start: 20250213
  2. INLYTA [Suspect]
     Active Substance: AXITINIB
     Indication: Neoplasm
     Route: 048
     Dates: start: 20250228, end: 20250714
  3. NORVASC [Concomitant]
     Active Substance: AMLODIPINE BESYLATE
  4. CARBIDOPA AND LEVODOPA [Concomitant]
     Active Substance: CARBIDOPA\LEVODOPA

REACTIONS (2)
  - Pemphigoid [Not Recovered/Not Resolved]
  - Product use issue [Unknown]

NARRATIVE: CASE EVENT DATE: 20250213
